FAERS Safety Report 9896803 (Version 1)
Quarter: 2014Q1

REPORT INFORMATION
  Report Type: Spontaneous
  Country: US (occurrence: US)
  Receive Date: 20140213
  Receipt Date: 20140213
  Transmission Date: 20141002
  Serious: No
  Sender: FDA-Public Use
  Company Number: US-BRISTOL-MYERS SQUIBB COMPANY-19212190

PATIENT
  Age: 53 Year
  Sex: Female
  Weight: 73.47 kg

DRUGS (1)
  1. ORENCIA [Suspect]
     Indication: RHEUMATOID ARTHRITIS
     Dosage: LAST DOSE-09AUG13
     Route: 058
     Dates: start: 20130408

REACTIONS (3)
  - Upper respiratory tract infection [Unknown]
  - Infectious mononucleosis [Unknown]
  - Drug dose omission [Unknown]
